FAERS Safety Report 7531122-4 (Version None)
Quarter: 2011Q2

REPORT INFORMATION
  Report Type: 
  Country: None (occurrence: None)
  Receive Date: 20110526
  Receipt Date: 20110510
  Transmission Date: 20111010
  Serious: Yes (Hospitalization, Other)
  Sender: FDA-Public Use
  Company Number: 144-21880-08060362

PATIENT

DRUGS (5)
  1. REVLIMID [Suspect]
     Indication: MYELOMA RECURRENCE
     Dosage: 22.8 MG, FOR 3 WEEKS EVERY 4, PO
     Route: 048
  2. HEPARIN [Concomitant]
  3. DEXAMETHASONE [Concomitant]
  4. ANTICOAGULANT (ANTICOAGULANT SODIUM CITRATE) [Concomitant]
  5. ASPIRIN [Concomitant]

REACTIONS (20)
  - THROMBOCYTOPENIA [None]
  - RENAL FAILURE [None]
  - THALAMIC INFARCTION [None]
  - DISEASE PROGRESSION [None]
  - ASTHENIA [None]
  - PNEUMONIA [None]
  - DYSAESTHESIA [None]
  - CARDIAC FAILURE [None]
  - NEUROPATHY PERIPHERAL [None]
  - FEBRILE NEUTROPENIA [None]
  - RASH [None]
  - HYPOALBUMINAEMIA [None]
  - OSTEONECROSIS OF JAW [None]
  - PANCREATITIS [None]
  - DEEP VEIN THROMBOSIS [None]
  - ANAEMIA [None]
  - DIARRHOEA [None]
  - NEPHROPATHY TOXIC [None]
  - TOXICITY TO VARIOUS AGENTS [None]
  - SYNCOPE [None]
